FAERS Safety Report 13843902 (Version 3)
Quarter: 2024Q2

REPORT INFORMATION
  Report Type: Spontaneous
  Country: TR (occurrence: TR)
  Receive Date: 20170808
  Receipt Date: 20240506
  Transmission Date: 20240716
  Serious: Yes (Hospitalization, Other)
  Sender: FDA-Public Use
  Company Number: None

PATIENT
  Age: 43 Year
  Sex: Male

DRUGS (4)
  1. CISPLATIN [Suspect]
     Active Substance: CISPLATIN
     Indication: Refractory cancer
     Dosage: 25 MG/M2, ON DAYS 2-5, EVERY 21 DAYS 3 TIMES IN 3 MONTHS
  2. PACLITAXEL [Suspect]
     Active Substance: PACLITAXEL
     Indication: Refractory cancer
     Dosage: 250 MG/M2, ON DAY 1, EVERY 21 DAYS 3 TIMES IN 3 MONTHS
  3. IFOSFAMIDE [Suspect]
     Active Substance: IFOSFAMIDE
     Indication: Refractory cancer
     Dosage: 1500 MG/M2, ON DAYS 2-5, EVERY 21 DAYS, 3 TIMES IN 3 MONTHS
  4. MESNA [Concomitant]
     Active Substance: MESNA
     Indication: Refractory cancer
     Dosage: 1500 MG/M2, ON DAYS 2-5, EVERY 21 DAYS, 3 TIMES IN 3 MONTHS

REACTIONS (2)
  - Thrombotic thrombocytopenic purpura [Recovered/Resolved]
  - Febrile neutropenia [Unknown]
